FAERS Safety Report 21721217 (Version 1)
Quarter: 2022Q4

REPORT INFORMATION
  Report Type: Spontaneous
  Country: GB (occurrence: None)
  Receive Date: 20221212
  Receipt Date: 20221212
  Transmission Date: 20230112
  Serious: Yes (Disabling)
  Sender: FDA-Public Use
  Company Number: None

PATIENT
  Age: 36 Year
  Sex: Female
  Weight: 50 kg

DRUGS (12)
  1. FERINJECT [Suspect]
     Active Substance: FERRIC CARBOXYMALTOSE
     Indication: Serum ferritin decreased
     Dosage: OTHER STRENGTH : UNKNOWN;?OTHER QUANTITY : 1 INFUSION;?OTHER FREQUENCY : ONE OFF INFUSION;?
     Route: 042
  2. Insulin pump with continuous glucose monitoring Laxatives [Concomitant]
  3. docusate sodium, prucalopride Antihistamines [Concomitant]
  4. hydroxyzine, certirizine, Fexofenadine Inhalers Cerelle [Concomitant]
  5. contraceptive pill [Concomitant]
  6. MAGNESIUM [Concomitant]
  7. VITAMIN D NOS [Concomitant]
     Active Substance: VITAMIN D NOS
  8. VITAMIN C [Concomitant]
     Active Substance: ASCORBIC ACID
  9. Vit B [Concomitant]
  10. complex Probiotic [Concomitant]
  11. Hydroxocobalamin  Folic acid [Concomitant]
  12. Evening primrose oil [Concomitant]

REACTIONS (7)
  - Hypophosphataemia [None]
  - Fatigue [None]
  - Bone pain [None]
  - Muscular weakness [None]
  - Stress [None]
  - Discomfort [None]
  - General physical health deterioration [None]

NARRATIVE: CASE EVENT DATE: 20221021
